FAERS Safety Report 21182926 (Version 1)
Quarter: 2022Q3

REPORT INFORMATION
  Report Type: Spontaneous
  Country: US (occurrence: US)
  Receive Date: 20220808
  Receipt Date: 20220808
  Transmission Date: 20221027
  Serious: No
  Sender: FDA-Public Use
  Company Number: US-SA-SAC20220802000144

PATIENT
  Age: 23 Year
  Sex: Female

DRUGS (1)
  1. DUPIXENT [Suspect]
     Active Substance: DUPILUMAB
     Dosage: 300MG/2ML OTHER, FREQUENCY: OTHER
     Route: 058
     Dates: start: 2022

REACTIONS (4)
  - Oral herpes [Recovering/Resolving]
  - Eye irritation [Unknown]
  - Therapeutic response shortened [Unknown]
  - Eczema [Unknown]
